FAERS Safety Report 6195832-6 (Version None)
Quarter: 2009Q2

REPORT INFORMATION
  Report Type: 
  Country: None (occurrence: None)
  Receive Date: 20090520
  Receipt Date: 20090512
  Transmission Date: 20091009
  Serious: Yes (Hospitalization)
  Sender: FDA-Public Use
  Company Number: US-BAYER-200837906NA

PATIENT
  Age: 23 Year
  Sex: Female
  Weight: 54 kg

DRUGS (3)
  1. YAZ [Suspect]
     Indication: ACNE
     Dosage: ONCE DAILY
     Route: 048
     Dates: start: 20080401
  2. ALPRAZOLAM [Concomitant]
  3. FOLIC ACID [Concomitant]

REACTIONS (1)
  - CONVULSION [None]
